FAERS Safety Report 5695047-1 (Version None)
Quarter: 2008Q2

REPORT INFORMATION
  Report Type: 
  Country: None (occurrence: None)
  Receive Date: 20080404
  Receipt Date: 20080325
  Transmission Date: 20081010
  Serious: Yes (Other)
  Sender: FDA-Public Use
  Company Number: US-PFIZER INC-2008004398

PATIENT
  Sex: Female

DRUGS (5)
  1. CHANTIX [Suspect]
     Indication: SMOKING CESSATION THERAPY
     Route: 048
     Dates: start: 20080107, end: 20080121
  2. CHANTIX [Suspect]
     Indication: TOBACCO ABUSE
  3. PAXIL [Concomitant]
  4. XANAX [Concomitant]
  5. ZANTAC [Concomitant]

REACTIONS (16)
  - ABNORMAL BEHAVIOUR [None]
  - ANGER [None]
  - DISTRACTIBILITY [None]
  - ECONOMIC PROBLEM [None]
  - ENERGY INCREASED [None]
  - FLIGHT OF IDEAS [None]
  - FRUSTRATION [None]
  - HALLUCINATION [None]
  - HYPOKINESIA [None]
  - INSOMNIA [None]
  - IRRITABILITY [None]
  - LIBIDO INCREASED [None]
  - LOGORRHOEA [None]
  - PANIC ATTACK [None]
  - PSYCHOMOTOR HYPERACTIVITY [None]
  - SUICIDAL IDEATION [None]
